FAERS Safety Report 7648033-6 (Version None)
Quarter: 2011Q3

REPORT INFORMATION
  Report Type: 
  Country: None (occurrence: None)
  Receive Date: 20110801
  Receipt Date: 20110729
  Transmission Date: 20111222
  Serious: Yes (Death, Hospitalization)
  Sender: FDA-Public Use
  Company Number: US-BAYER-201016038NA

PATIENT
  Age: 31 Year
  Sex: Male

DRUGS (2)
  1. SORAFENIB (RAF KINASE INHIBITOR) [Suspect]
     Indication: HEPATIC NEOPLASM MALIGNANT
     Route: 048
     Dates: start: 20100210, end: 20100217
  2. DOXORUBICIN HCL [Suspect]
     Indication: HEPATIC NEOPLASM MALIGNANT
     Dosage: GIVEN WITH LC BEADS IN TACE (ELUTING BEAD-TRANSARTERIAL CHEMOEMBOLIZATION)
     Dates: start: 20100217

REACTIONS (6)
  - VENA CAVA THROMBOSIS [None]
  - HEPATIC ENCEPHALOPATHY [None]
  - HEPATIC HYDROTHORAX [None]
  - HYPOXIA [None]
  - PULMONARY EMBOLISM [None]
  - HEPATIC NEOPLASM MALIGNANT [None]
